FAERS Safety Report 21813042 (Version 1)
Quarter: 2023Q1

REPORT INFORMATION
  Report Type: Spontaneous
  Country: ES (occurrence: ES)
  Receive Date: 20230103
  Receipt Date: 20230103
  Transmission Date: 20230418
  Serious: Yes (Other)
  Sender: FDA-Public Use
  Company Number: None

PATIENT
  Age: 76 Year
  Sex: Male

DRUGS (8)
  1. ACYCLOVIR [Suspect]
     Active Substance: ACYCLOVIR
     Indication: Herpes zoster meningoencephalitis
     Dosage: 750.0 MG C/8 HOURS
     Route: 042
     Dates: start: 20220803, end: 20220816
  2. ACIDO IBANDRONICO CINFA [Concomitant]
     Indication: Osteoporosis
     Dosage: 150.0 MG C/28 DIAS
     Route: 048
     Dates: start: 20191203
  3. CHOLECALCIFEROL [Concomitant]
     Active Substance: CHOLECALCIFEROL
     Indication: Vitamin D deficiency
     Dosage: 25000.0 UI C/15 DAYS
     Route: 048
     Dates: start: 20191203
  4. BENSERAZIDE HYDROCHLORIDE\LEVODOPA [Concomitant]
     Active Substance: BENSERAZIDE HYDROCHLORIDE\LEVODOPA
     Indication: Parkinson^s disease
     Dosage: 1.5 COMP DECOCE
     Route: 048
     Dates: start: 20200720
  5. DORMICUM [Concomitant]
     Indication: Pollakiuria
     Dosage: 7.5 MG C/24 H NOC
     Route: 048
     Dates: start: 20220210
  6. MIRABEGRON [Concomitant]
     Active Substance: MIRABEGRON
     Indication: Pollakiuria
     Dosage: 50.0 MG C/24 H
     Route: 048
     Dates: start: 20220430
  7. DEPRAX [Concomitant]
     Indication: Parkinson^s disease
     Dosage: 200.0 MG C/24 H NOC
     Route: 048
     Dates: start: 20201112
  8. NEUPRO [Concomitant]
     Active Substance: ROTIGOTINE
     Indication: Parkinson^s disease
     Dosage: 6.0 MG C/24 H
     Dates: start: 20201028

REACTIONS (1)
  - Acute kidney injury [Recovered/Resolved]

NARRATIVE: CASE EVENT DATE: 20220816
